FAERS Safety Report 6160831-7 (Version None)
Quarter: 2009Q2

REPORT INFORMATION
  Report Type: 
  Country: None (occurrence: None)
  Receive Date: 20090420
  Receipt Date: 20090407
  Transmission Date: 20091009
  Serious: Yes (Death)
  Sender: FDA-Public Use
  Company Number: US-ROCHE-601214

PATIENT
  Sex: Male
  Weight: 140.2 kg

DRUGS (3)
  1. PEG-INTERFERON ALFA 2A (RO 25-8310) [Suspect]
     Dosage: DOSAGE BLINDED FOR FIRST TWELVE WEEKS.
     Route: 058
  2. PEG-INTERFERON ALFA 2A (RO 25-8310) [Suspect]
     Dosage: LAST DOSE PRIOR TO SAE WAS ON 30 JAN 2008.
     Route: 058
     Dates: start: 20070307, end: 20081203
  3. RIBAVIRIN [Suspect]
     Dosage: DOSE WAS BLINDED.
     Route: 048
     Dates: start: 20070307, end: 20081203

REACTIONS (1)
  - HEPATIC CANCER METASTATIC [None]
